FAERS Safety Report 6809513-6 (Version None)
Quarter: 2010Q2

REPORT INFORMATION
  Report Type: 
  Country: None (occurrence: None)
  Receive Date: 20100630
  Receipt Date: 20100625
  Transmission Date: 20101027
  Serious: Yes (Life-Threatening, Other)
  Sender: FDA-Public Use
  Company Number: US-ASTRAZENECA-2010SE30108

PATIENT
  Age: 74 Year

DRUGS (1)
  1. PRILOSEC OTC [Suspect]
     Route: 048

REACTIONS (2)
  - INCORRECT DRUG ADMINISTRATION DURATION [None]
  - LOWER LIMB FRACTURE [None]
